FAERS Safety Report 25066497 (Version 1)
Quarter: 2025Q1

REPORT INFORMATION
  Report Type: Report from Study
  Country: US (occurrence: US)
  Receive Date: 20250312
  Receipt Date: 20250312
  Transmission Date: 20250409
  Serious: No
  Sender: SUNOVION
  Company Number: US-SUMITOMO PHARMA SWITZERLAND GMBH-2025SPA001765

PATIENT

DRUGS (3)
  1. ORGOVYX [Suspect]
     Active Substance: RELUGOLIX
     Indication: Prostate cancer
     Route: 048
     Dates: start: 20230123, end: 20230123
  2. ORGOVYX [Suspect]
     Active Substance: RELUGOLIX
     Dosage: 120 MG, QD
     Route: 048
     Dates: start: 20230124
  3. XTANDI [Concomitant]
     Active Substance: ENZALUTAMIDE

REACTIONS (6)
  - Feeling of body temperature change [Unknown]
  - Pruritus [Unknown]
  - Anger [Unknown]
  - Acne [Unknown]
  - Insomnia [Unknown]
  - Hot flush [Unknown]
